FAERS Safety Report 9270654 (Version 2)
Quarter: 2013Q2

REPORT INFORMATION
  Report Type: Spontaneous
  Country: US (occurrence: US)
  Receive Date: 20130506
  Receipt Date: 20130507
  Transmission Date: 20140414
  Serious: No
  Sender: FDA-Public Use
  Company Number: US-009507513-1305USA000693

PATIENT
  Age: 62 Year
  Sex: Female

DRUGS (3)
  1. NASONEX [Suspect]
     Indication: NASAL CONGESTION
     Dosage: UNK UNK, QD
     Route: 045
     Dates: start: 201302, end: 2013
  2. NASONEX [Suspect]
     Dosage: UNK UNK, QD
     Route: 045
     Dates: start: 2013
  3. SINGULAIR [Concomitant]
     Dosage: UNK
     Route: 048

REACTIONS (2)
  - Nasal congestion [Unknown]
  - Drug ineffective [Unknown]
